FAERS Safety Report 7472166-0 (Version None)
Quarter: 2011Q2

REPORT INFORMATION
  Report Type: 
  Country: None (occurrence: None)
  Receive Date: 20110511
  Receipt Date: 20110211
  Transmission Date: 20111010
  Serious: No
  Sender: FDA-Public Use
  Company Number: A0913134A

PATIENT
  Age: 68 Year
  Sex: Female

DRUGS (5)
  1. TYKERB [Suspect]
     Indication: BREAST CANCER
     Dosage: 1000MG PER DAY
     Route: 048
     Dates: start: 20110204
  2. VITAMINS [Concomitant]
  3. SOTALOL HCL [Concomitant]
  4. ZOLOFT [Concomitant]
  5. HERCEPTIN [Concomitant]

REACTIONS (2)
  - PRURITUS [None]
  - DRY SKIN [None]
